FAERS Safety Report 12187980 (Version 1)
Quarter: 2016Q1

REPORT INFORMATION
  Report Type: Spontaneous
  Country: JP (occurrence: JP)
  Receive Date: 20160317
  Receipt Date: 20160317
  Transmission Date: 20160526
  Serious: Yes (Other)
  Sender: FDA-Public Use
  Company Number: JP-JNJFOC-20160310495

PATIENT
  Age: 63 Year
  Sex: Male

DRUGS (2)
  1. PREDONINE [Suspect]
     Active Substance: PREDNISOLONE\PREDNISOLONE ACETATE\PREDNISOLONE SODIUM SUCCINATE
     Indication: PRODUCT USED FOR UNKNOWN INDICATION
     Route: 051
  2. REMICADE [Suspect]
     Active Substance: INFLIXIMAB
     Indication: PSORIASIS
     Dosage: THERAPY DURATION 7 DAYS
     Route: 042
     Dates: start: 20141111

REACTIONS (2)
  - Demyelination [Recovering/Resolving]
  - Antinuclear antibody positive [Recovering/Resolving]

NARRATIVE: CASE EVENT DATE: 201512
